FAERS Safety Report 7562330-4 (Version None)
Quarter: 2011Q2

REPORT INFORMATION
  Report Type: 
  Country: None (occurrence: None)
  Receive Date: 20110622
  Receipt Date: 20110614
  Transmission Date: 20111010
  Serious: Yes (Other)
  Sender: FDA-Public Use
  Company Number: US-US-EMD SERONO, INC.-7036077

PATIENT
  Age: 60 Year
  Sex: Female
  Weight: 54 kg

DRUGS (1)
  1. REBIF [Suspect]
     Indication: MULTIPLE SCLEROSIS
     Route: 058
     Dates: start: 20090901, end: 20101201

REACTIONS (5)
  - PAIN IN EXTREMITY [None]
  - LUPUS-LIKE SYNDROME [None]
  - ANAL CANCER STAGE I [None]
  - ONYCHOMADESIS [None]
  - SKIN DISCOLOURATION [None]
